FAERS Safety Report 6474508-1 (Version None)
Quarter: 2009Q4

REPORT INFORMATION
  Report Type: 
  Country: None (occurrence: None)
  Receive Date: 20091204
  Receipt Date: 20091124
  Transmission Date: 20100525
  Serious: Yes (Death)
  Sender: FDA-Public Use
  Company Number: JP-ABBOTT-09P-087-0609350-00

PATIENT
  Sex: Male
  Weight: 54.1 kg

DRUGS (9)
  1. HUMIRA [Suspect]
     Indication: RHEUMATOID ARTHRITIS
     Route: 058
     Dates: start: 20090402, end: 20090610
  2. HUMIRA [Suspect]
     Dosage: NOT  REPORTED
  3. PREDNISOLONE [Concomitant]
     Indication: VASCULITIS
     Dates: start: 20080723, end: 20090406
  4. RABEPRAZOLE SODIUM [Concomitant]
     Indication: GASTRITIS PROPHYLAXIS
  5. VALSARTAN [Concomitant]
     Indication: HYPERTENSION
  6. ALFACALCIDOL [Concomitant]
     Indication: OSTEOPOROSIS
  7. SULFAMETHOXAZOLE AND TRIMETHOPRIM [Concomitant]
     Indication: ANTIFUNGAL PROPHYLAXIS
  8. SULFAMETHOXAZOLE AND TRIMETHOPRIM [Concomitant]
  9. ISONIAZID [Concomitant]
     Indication: ANTIBIOTIC PROPHYLAXIS

REACTIONS (1)
  - CARDIO-RESPIRATORY ARREST [None]
